FAERS Safety Report 12403211 (Version 4)
Quarter: 2016Q2

REPORT INFORMATION
  Report Type: Report from Study
  Country: US (occurrence: US)
  Receive Date: 20160525
  Receipt Date: 20160629
  Transmission Date: 20160815
  Serious: Yes (Hospitalization, Other)
  Sender: FDA-Public Use
  Company Number: US-GILEAD-2016-0210118

PATIENT
  Age: 65 Year
  Sex: Female

DRUGS (2)
  1. AMBRISENTAN [Suspect]
     Active Substance: AMBRISENTAN
     Indication: PRODUCT USED FOR UNKNOWN INDICATION
     Dosage: 10 MG, QD
     Route: 065
     Dates: start: 20120921
  2. ORENITRAM [Concomitant]
     Active Substance: TREPROSTINIL

REACTIONS (16)
  - Musculoskeletal pain [Unknown]
  - Depression [Unknown]
  - Cough [Unknown]
  - Pneumonia [Unknown]
  - Musculoskeletal chest pain [Unknown]
  - Feeling abnormal [Unknown]
  - Pain [Unknown]
  - Dyspnoea [Unknown]
  - Pyrexia [Unknown]
  - Headache [Unknown]
  - Neck pain [Unknown]
  - Heart rate abnormal [Unknown]
  - Constipation [Unknown]
  - Hypotension [Unknown]
  - Epistaxis [Unknown]
  - Back pain [Unknown]

NARRATIVE: CASE EVENT DATE: 201604
